FAERS Safety Report 19482309 (Version 1)
Quarter: 2021Q3

REPORT INFORMATION
  Report Type: Spontaneous
  Country: US (occurrence: US)
  Receive Date: 20210701
  Receipt Date: 20210701
  Transmission Date: 20211014
  Serious: No
  Sender: FDA-Public Use
  Company Number: US-SA-2021SA213586

PATIENT
  Age: 44 Year
  Sex: Female

DRUGS (2)
  1. BOTOX [Concomitant]
     Active Substance: ONABOTULINUMTOXINA
  2. DUPIXENT [Suspect]
     Active Substance: DUPILUMAB
     Indication: CHRONIC RHINOSINUSITIS WITH NASAL POLYPS
     Dosage: 300 MG, QOW
     Route: 058
     Dates: start: 202106

REACTIONS (10)
  - Sneezing [Unknown]
  - Ear pain [Unknown]
  - Facial pain [Unknown]
  - Cough [Unknown]
  - Rhinorrhoea [Unknown]
  - Ear discomfort [Unknown]
  - Hypogeusia [Unknown]
  - Hyposmia [Unknown]
  - Upper-airway cough syndrome [Unknown]
  - Facial discomfort [Unknown]

NARRATIVE: CASE EVENT DATE: 2021
